FAERS Safety Report 8606430-6 (Version None)
Quarter: 2012Q3

REPORT INFORMATION
  Report Type: 
  Country: None (occurrence: None)
  Receive Date: 20120820
  Receipt Date: 20120808
  Transmission Date: 20120928
  Serious: Yes (Other)
  Sender: FDA-Public Use
  Company Number: SG-COVIDIEN/TYCO HEALTHCARE/MALLINCKRODT-T201203072

PATIENT
  Sex: Male

DRUGS (2)
  1. TOFRANIL-PM [Suspect]
     Indication: DEPRESSION
     Dosage: 25 MG, QD
  2. AMLODIPINE [Concomitant]
     Indication: HYPERTENSION

REACTIONS (4)
  - FLOPPY IRIS SYNDROME [None]
  - CATARACT [None]
  - IRIS DISORDER [None]
  - VISUAL ACUITY REDUCED [None]
